FAERS Safety Report 23524833 (Version 1)
Quarter: 2024Q1

REPORT INFORMATION
  Report Type: Spontaneous
  Country: FR (occurrence: FR)
  Receive Date: 20240215
  Receipt Date: 20240215
  Transmission Date: 20240409
  Serious: Yes (Other)
  Sender: FDA-Public Use
  Company Number: FR-AFSSAPS-LY2024000091

PATIENT
  Age: 6 Year
  Sex: Female
  Weight: 18 kg

DRUGS (2)
  1. AMOXICILLIN [Suspect]
     Active Substance: AMOXICILLIN
     Indication: Lung disorder
     Dosage: 1 DOSAGE FORM, TOTAL
     Route: 048
     Dates: start: 20240112, end: 20240112
  2. CEFPODOXIME [Suspect]
     Active Substance: CEFPODOXIME
     Indication: Lung disorder
     Dosage: 1 DOSAGE FORM, TOTAL
     Route: 048
     Dates: start: 20240112, end: 20240112

REACTIONS (2)
  - Angioedema [Recovered/Resolved]
  - Rash pruritic [Recovered/Resolved]

NARRATIVE: CASE EVENT DATE: 20240112
